FAERS Safety Report 9434767 (Version 1)
Quarter: 2013Q3

REPORT INFORMATION
  Report Type: Spontaneous
  Country: GB (occurrence: GB)
  Receive Date: 20130801
  Receipt Date: 20130801
  Transmission Date: 20140515
  Serious: Yes (Hospitalization)
  Sender: FDA-Public Use
  Company Number: GB-PFIZER INC-2013220624

PATIENT
  Age: 35 Year
  Sex: 0

DRUGS (7)
  1. TAZOCIN [Suspect]
     Indication: PYREXIA
     Dosage: 4G/500MG, UNK
     Dates: start: 20110823, end: 20110831
  2. TAZOCIN [Suspect]
     Dosage: 4G/500MG, UNK
     Dates: start: 20110903, end: 20110907
  3. TAZOCIN [Suspect]
     Dosage: 4G/500MG, UNK
     Dates: start: 20110928
  4. CASPOFUNGIN [Suspect]
     Indication: ORAL CANDIDIASIS
     Dosage: UNK
     Dates: start: 20110822
  5. GENTAMICIN [Suspect]
     Indication: PYREXIA
     Dosage: 80MG/2ML , UNK
     Dates: start: 20110823
  6. TEICOPLANIN [Suspect]
     Indication: ENTEROCOCCAL INFECTION
     Dosage: 400 MG, UNK
     Dates: start: 20110824, end: 20110902
  7. CIPROFLOXACIN [Concomitant]
     Indication: PROPHYLAXIS
     Route: 048

REACTIONS (4)
  - Clostridium test positive [Recovered/Resolved]
  - Diarrhoea [Unknown]
  - Nausea [Unknown]
  - Malaise [Unknown]
